FAERS Safety Report 16374554 (Version 1)
Quarter: 2019Q2

REPORT INFORMATION
  Report Type: Report from Study
  Country: RU (occurrence: RU)
  Receive Date: 20190530
  Receipt Date: 20190530
  Transmission Date: 20190711
  Serious: Yes (Death, Life-Threatening, Hospitalization, Other)
  Sender: FDA-Public Use
  Company Number: RU-BRISTOL-MYERS SQUIBB COMPANY-BMS-2018-114792

PATIENT
  Age: 57 Year
  Sex: Male

DRUGS (2)
  1. NIVOLUMAB [Suspect]
     Active Substance: NIVOLUMAB
     Indication: METASTATIC RENAL CELL CARCINOMA
     Dosage: 240 MG, UNK
     Route: 042
     Dates: start: 20180608, end: 20180608
  2. CABOZANTINIB [Suspect]
     Active Substance: CABOZANTINIB
     Indication: METASTATIC RENAL CELL CARCINOMA
     Dosage: 40 MG, UNK
     Route: 048
     Dates: start: 20180608, end: 20180612

REACTIONS (2)
  - Cerebral ischaemia [Recovering/Resolving]
  - Intestinal perforation [Fatal]

NARRATIVE: CASE EVENT DATE: 20180609
